FAERS Safety Report 7554323-8 (Version None)
Quarter: 2011Q2

REPORT INFORMATION
  Report Type: 
  Country: None (occurrence: None)
  Receive Date: 20110617
  Receipt Date: 20110608
  Transmission Date: 20111010
  Serious: Yes (Hospitalization)
  Sender: FDA-Public Use
  Company Number: JP-JNJFOC-20110505293

PATIENT
  Sex: Female

DRUGS (5)
  1. TOPIRAMATE [Suspect]
     Indication: EPILEPSY
     Route: 048
  2. TOPIRAMATE [Suspect]
     Route: 048
     Dates: start: 20110428, end: 20110529
  3. DEPAKOTE [Concomitant]
     Route: 048
     Dates: start: 20101108
  4. TOPIRAMATE [Suspect]
     Route: 048
     Dates: start: 20110530
  5. TEGRETOL [Concomitant]
     Route: 048
     Dates: start: 20110201

REACTIONS (2)
  - PNEUMONIA [None]
  - STATUS EPILEPTICUS [None]
